FAERS Safety Report 9918098 (Version 2)
Quarter: 2014Q1

REPORT INFORMATION
  Report Type: Spontaneous
  Country: US (occurrence: US)
  Receive Date: 20140223
  Receipt Date: 20140223
  Transmission Date: 20141002
  Serious: No
  Sender: FDA-Public Use
  Company Number: US-ALLERGAN-1310001US

PATIENT
  Sex: Male

DRUGS (2)
  1. TAZORAC CREAM 0.05% [Suspect]
     Indication: ACNE
     Dosage: UNK, QHS
     Route: 061
     Dates: start: 20130604
  2. CLARIFOAM [Concomitant]
     Indication: ACNE
     Dosage: UNK UNK, QHS
     Route: 061

REACTIONS (1)
  - Acne [Unknown]
